FAERS Safety Report 25707765 (Version 1)
Quarter: 2025Q3

REPORT INFORMATION
  Report Type: Spontaneous
  Country: EU (occurrence: EU)
  Receive Date: 20250820
  Receipt Date: 20250820
  Transmission Date: 20251021
  Serious: Yes (Other)
  Sender: MYLAN
  Company Number: None

PATIENT
  Age: 36 Year
  Sex: Female
  Weight: 65 kg

DRUGS (12)
  1. TRAMADOL HYDROCHLORIDE [Suspect]
     Active Substance: TRAMADOL HYDROCHLORIDE
     Indication: Product used for unknown indication
  2. TRAMADOL HYDROCHLORIDE [Suspect]
     Active Substance: TRAMADOL HYDROCHLORIDE
     Route: 065
  3. TRAMADOL HYDROCHLORIDE [Suspect]
     Active Substance: TRAMADOL HYDROCHLORIDE
     Route: 065
  4. TRAMADOL HYDROCHLORIDE [Suspect]
     Active Substance: TRAMADOL HYDROCHLORIDE
  5. CHLORZOXAZONE [Suspect]
     Active Substance: CHLORZOXAZONE
     Indication: Neck pain
     Dosage: 5 DOSAGE FORM, QD (THE PATIENT TOOK THE MEDICINE FIVE TIMES THROUGHOUT THE DAY, WITH THE LAST DOSE AT 11 P.M., JUST BEFORE GOING TO BED)
  6. CHLORZOXAZONE [Suspect]
     Active Substance: CHLORZOXAZONE
     Indication: Musculoskeletal pain
     Dosage: 5 DOSAGE FORM, QD (THE PATIENT TOOK THE MEDICINE FIVE TIMES THROUGHOUT THE DAY, WITH THE LAST DOSE AT 11 P.M., JUST BEFORE GOING TO BED)
     Route: 065
  7. CHLORZOXAZONE [Suspect]
     Active Substance: CHLORZOXAZONE
     Dosage: 5 DOSAGE FORM, QD (THE PATIENT TOOK THE MEDICINE FIVE TIMES THROUGHOUT THE DAY, WITH THE LAST DOSE AT 11 P.M., JUST BEFORE GOING TO BED)
     Route: 065
  8. CHLORZOXAZONE [Suspect]
     Active Substance: CHLORZOXAZONE
     Dosage: 5 DOSAGE FORM, QD (THE PATIENT TOOK THE MEDICINE FIVE TIMES THROUGHOUT THE DAY, WITH THE LAST DOSE AT 11 P.M., JUST BEFORE GOING TO BED)
  9. IBUPROFEN [Concomitant]
     Active Substance: IBUPROFEN
  10. IBUPROFEN [Concomitant]
     Active Substance: IBUPROFEN
     Route: 065
  11. IBUPROFEN [Concomitant]
     Active Substance: IBUPROFEN
     Route: 065
  12. IBUPROFEN [Concomitant]
     Active Substance: IBUPROFEN

REACTIONS (4)
  - Loss of consciousness [Recovered/Resolved]
  - Feeling cold [Recovering/Resolving]
  - Fall [Recovered/Resolved]
  - Nausea [Recovering/Resolving]
